FAERS Safety Report 7232947-5 (Version None)
Quarter: 2011Q1

REPORT INFORMATION
  Report Type: 
  Country: None (occurrence: None)
  Receive Date: 20110119
  Receipt Date: 20110106
  Transmission Date: 20110831
  Serious: No
  Sender: FDA-Public Use
  Company Number: DE-ELI_LILLY_AND_COMPANY-DE201012005360

PATIENT
  Age: 59 Year
  Sex: Male

DRUGS (3)
  1. CIALIS [Suspect]
     Indication: ERECTILE DYSFUNCTION
     Dosage: 10 MG, UNK
     Route: 048
     Dates: start: 20101218, end: 20101221
  2. RAMIPRIL [Concomitant]
     Dosage: 5 MG, UNK
  3. GLIMEPIRID [Concomitant]

REACTIONS (4)
  - HEADACHE [None]
  - BACK PAIN [None]
  - OCULAR HYPERAEMIA [None]
  - VISUAL IMPAIRMENT [None]
